FAERS Safety Report 4498271-9 (Version None)
Quarter: 2004Q4

REPORT INFORMATION
  Report Type: 
  Country: None (occurrence: None)
  Receive Date: 20040927
  Receipt Date: 20040611
  Transmission Date: 20050328
  Serious: No
  Sender: FDA-Public Use
  Company Number: USA040670045

PATIENT
  Age: 11 Year
  Sex: Male

DRUGS (2)
  1. STRATTERA [Suspect]
     Indication: ATTENTION DEFICIT/HYPERACTIVITY DISORDER
     Dosage: 40 MG IN THE MORNING
     Dates: start: 20040301
  2. ADDERALL 10 [Concomitant]

REACTIONS (4)
  - DECREASED APPETITE [None]
  - DRUG INEFFECTIVE [None]
  - FEAR [None]
  - INITIAL INSOMNIA [None]
